FAERS Safety Report 4545358-8 (Version None)
Quarter: 2004Q4

REPORT INFORMATION
  Report Type: 
  Country: None (occurrence: None)
  Receive Date: 20041230
  Receipt Date: 20041217
  Transmission Date: 20050328
  Serious: Yes (Death, Life-Threatening, Hospitalization)
  Sender: FDA-Public Use
  Company Number: HQWYE705612OCT04

PATIENT
  Age: 59 Year
  Sex: Female

DRUGS (14)
  1. RAPAMUNE [Suspect]
     Indication: PROPHYLAXIS AGAINST TRANSPLANT REJECTION
     Dosage: SEE IMAGE
     Route: 048
     Dates: start: 20040708, end: 20040714
  2. RAPAMUNE [Suspect]
     Indication: PROPHYLAXIS AGAINST TRANSPLANT REJECTION
     Dosage: SEE IMAGE
     Route: 048
     Dates: start: 20040715, end: 20041005
  3. FUROSEMIDE [Concomitant]
  4. MYCOPHENOLATE MOFETIL (MYCOPHENOLATE MOFETIL) [Concomitant]
  5. PREDNISONE [Concomitant]
  6. ATORVASTATIN (ATORVASTATIN) [Concomitant]
  7. RANITIDINE [Concomitant]
  8. DIAZEPAM ^DAK^ (DIAZEPAM) [Concomitant]
  9. FERROUS SULFATE TAB [Concomitant]
  10. ARANESP [Concomitant]
  11. VALGANCICLOVIR (VALGANCICLOVIR) [Concomitant]
  12. CALCIUM (CALCIUM) [Concomitant]
  13. SODIUM BICARBONATE IN PLASTIC CONTAINER [Concomitant]
  14. ALLOPURINOL [Concomitant]

REACTIONS (26)
  - ACINETOBACTER INFECTION [None]
  - AORTIC ATHEROSCLEROSIS [None]
  - AORTIC CALCIFICATION [None]
  - BLOOD GLUCOSE INCREASED [None]
  - BRONCHOPNEUMONIA [None]
  - CARDIAC FAILURE [None]
  - CARDIAC TAMPONADE [None]
  - CARDIO-RESPIRATORY ARREST [None]
  - CARDIOMEGALY [None]
  - DIALYSIS [None]
  - HAEMATOCRIT DECREASED [None]
  - HAEMOGLOBIN DECREASED [None]
  - HAEMOPTYSIS [None]
  - HYPOXIA [None]
  - ILEUS [None]
  - IMMUNOSUPPRESSION [None]
  - KLEBSIELLA INFECTION [None]
  - MULTI-ORGAN FAILURE [None]
  - OPPORTUNISTIC INFECTION [None]
  - PERICARDIAL EFFUSION [None]
  - PERICARDITIS [None]
  - PLATELET COUNT DECREASED [None]
  - PNEUMONIA [None]
  - RENAL FAILURE CHRONIC [None]
  - SEPTIC SHOCK [None]
  - THERAPY NON-RESPONDER [None]
